FAERS Safety Report 4730795-9 (Version None)
Quarter: 2005Q3

REPORT INFORMATION
  Report Type: 
  Country: None (occurrence: None)
  Receive Date: 20050726
  Receipt Date: 20050310
  Transmission Date: 20060218
  Serious: Yes (Other)
  Sender: FDA-Public Use
  Company Number: 2004AP000740

PATIENT
  Sex: Male

DRUGS (5)
  1. SOTALOL HCL [Suspect]
     Indication: VENTRICULAR TACHYCARDIA
     Dosage: 80 MG; QD; PO
     Route: 048
     Dates: start: 20040821, end: 20040827
  2. NORVASC [Concomitant]
  3. ACCUPRIL [Concomitant]
  4. LIPITOR [Concomitant]
  5. AMIODARONE [Concomitant]

REACTIONS (1)
  - VENTRICULAR TACHYCARDIA [None]
